FAERS Safety Report 5424490-0 (Version None)
Quarter: 2007Q3

REPORT INFORMATION
  Report Type: 
  Country: None (occurrence: None)
  Receive Date: 20070822
  Receipt Date: 20070808
  Transmission Date: 20080115
  Serious: Yes (Death, Hospitalization)
  Sender: FDA-Public Use
  Company Number: 8025752

PATIENT
  Age: 58 Year
  Sex: Male

DRUGS (21)
  1. KEPPRA [Suspect]
     Indication: EPILEPSY
     Dosage: 1 G 3/D PO
     Route: 048
     Dates: start: 20070618, end: 20070718
  2. KEPPRA [Suspect]
     Indication: EPILEPSY
     Dosage: 0.5 G 3/D PO
     Route: 048
     Dates: start: 20070719, end: 20070727
  3. SUFENTA [Suspect]
     Dosage: IV
     Route: 042
     Dates: start: 20070614, end: 20070727
  4. NIMBEX [Suspect]
     Dosage: PO
     Route: 048
     Dates: start: 20070701, end: 20070727
  5. HYPNOVEL [Suspect]
     Dosage: PO
     Route: 048
     Dates: start: 20070701, end: 20070727
  6. TEGRETOL [Suspect]
     Dosage: PO
     Route: 048
     Dates: start: 20070619, end: 20070723
  7. TEGRETOL [Suspect]
     Dosage: 200 MG 3/D PO
     Route: 048
     Dates: start: 20070724, end: 20070727
  8. DEBRIDAT [Concomitant]
  9. PROSTIGMIN [Concomitant]
  10. PARAFFINOLE [Concomitant]
  11. AOTAL [Concomitant]
  12. SPECIAFOLDINE [Concomitant]
  13. LUDIOMIL [Concomitant]
  14. LOVENOX [Concomitant]
  15. INIPOMP [Concomitant]
  16. SERETIDE [Concomitant]
  17. VITAMIN B1 AND B6 [Concomitant]
  18. EQUANIL [Concomitant]
  19. URBANYL [Concomitant]
  20. ATROVENT [Concomitant]
  21. BRICANYL [Concomitant]

REACTIONS (7)
  - CONFUSIONAL STATE [None]
  - CONSTIPATION [None]
  - DISORIENTATION [None]
  - ILEUS PARALYTIC [None]
  - MEGACOLON [None]
  - MUSCLE CONTRACTURE [None]
  - PNEUMONIA [None]
